FAERS Safety Report 9725511 (Version 1)
Quarter: 2013Q4

REPORT INFORMATION
  Report Type: Report from Study
  Country: TH (occurrence: TH)
  Receive Date: 20131203
  Receipt Date: 20131203
  Transmission Date: 20140711
  Serious: Yes (Other)
  Sender: FDA-Public Use
  Company Number: PHHY2013TH139684

PATIENT
  Age: 62 Year
  Sex: Female

DRUGS (3)
  1. ACLASTA [Suspect]
     Indication: OSTEOPOROSIS
     Dosage: UNK
     Route: 042
     Dates: start: 20131024
  2. CALCIUM [Concomitant]
  3. VITAMIN D [Concomitant]

REACTIONS (9)
  - Fall [Unknown]
  - Limb injury [Unknown]
  - Wrist fracture [Unknown]
  - Local swelling [Not Recovered/Not Resolved]
  - Erythema [Recovered/Resolved]
  - Hypoaesthesia [Recovered/Resolved]
  - Pain in extremity [Not Recovered/Not Resolved]
  - Gait disturbance [Unknown]
  - Muscular weakness [Unknown]
